FAERS Safety Report 8551350-9 (Version None)
Quarter: 2012Q3

REPORT INFORMATION
  Report Type: 
  Country: None (occurrence: None)
  Receive Date: 20120730
  Receipt Date: 20120120
  Transmission Date: 20120928
  Serious: No
  Sender: FDA-Public Use
  Company Number: US-ALLERGAN-1200887US

PATIENT
  Age: 40 Year
  Sex: Female

DRUGS (3)
  1. LATISSE [Suspect]
     Indication: GROWTH OF EYELASHES
     Dosage: 1 GTT, QHS
     Route: 061
     Dates: start: 20110101
  2. VISINE                             /00256502/ [Concomitant]
     Indication: OCULAR HYPERAEMIA
     Dosage: UNK
     Route: 047
  3. PATADAY [Concomitant]
     Indication: EYE IRRITATION
     Dosage: UNK
     Route: 047

REACTIONS (2)
  - THERAPEUTIC RESPONSE DECREASED [None]
  - WRONG TECHNIQUE IN DRUG USAGE PROCESS [None]
